FAERS Safety Report 9192329 (Version 1)
Quarter: 2013Q1

REPORT INFORMATION
  Report Type: Spontaneous
  Country: US (occurrence: None)
  Receive Date: 20130326
  Receipt Date: 20130326
  Transmission Date: 20140127
  Serious: Yes (Hospitalization)
  Sender: FDA-Public Use
  Company Number: None

PATIENT
  Age: 75 Year
  Sex: Male
  Weight: 110.6 kg

DRUGS (1)
  1. CELEBREX [Suspect]
     Indication: PROCEDURAL PAIN
     Route: 048
     Dates: start: 20130306, end: 20130311

REACTIONS (2)
  - Electrocardiogram ST segment depression [None]
  - Myocardial infarction [None]
